FAERS Safety Report 11363601 (Version 1)
Quarter: 2015Q3

REPORT INFORMATION
  Report Type: Spontaneous
  Country: GB (occurrence: GB)
  Receive Date: 20150811
  Receipt Date: 20150811
  Transmission Date: 20151125
  Serious: Yes (Hospitalization, Other)
  Sender: FDA-Public Use
  Company Number: GB-AUROBINDO-AUR-APL-2015-06722

PATIENT
  Age: 48 Year
  Sex: Female

DRUGS (1)
  1. PHENYTOIN. [Suspect]
     Active Substance: PHENYTOIN
     Indication: STATUS EPILEPTICUS
     Route: 065

REACTIONS (12)
  - Skin exfoliation [Recovered/Resolved]
  - Granuloma [Recovered/Resolved]
  - Left ventricular hypertrophy [Recovered/Resolved]
  - C-reactive protein increased [Recovered/Resolved]
  - Liver function test abnormal [Recovered/Resolved]
  - Pericardial effusion [Recovered/Resolved]
  - Microcytic anaemia [Recovered/Resolved]
  - Blood lactate dehydrogenase increased [Recovered/Resolved]
  - Toxic epidermal necrolysis [Recovered/Resolved]
  - Pancytopenia [Recovered/Resolved]
  - Acute kidney injury [Recovered/Resolved]
  - Eosinophil count increased [Recovered/Resolved]
